FAERS Safety Report 14486237 (Version 1)
Quarter: 2018Q1

REPORT INFORMATION
  Report Type: Spontaneous
  Country: US (occurrence: US)
  Receive Date: 20180205
  Receipt Date: 20180205
  Transmission Date: 20180509
  Serious: No
  Sender: FDA-Public Use
  Company Number: US-TEVA-2018-US-854484

PATIENT
  Age: 33 Year
  Sex: Female
  Weight: 74 kg

DRUGS (3)
  1. MULTIVITAMINS [Concomitant]
     Active Substance: VITAMINS
  2. PARAGARD T 380A [Suspect]
     Active Substance: COPPER
     Indication: CONTRACEPTION
     Route: 065
     Dates: start: 20171129
  3. SYNTHROID [Concomitant]
     Active Substance: LEVOTHYROXINE SODIUM
     Indication: HYPOTHYROIDISM

REACTIONS (1)
  - Device expulsion [Unknown]

NARRATIVE: CASE EVENT DATE: 20171229
